FAERS Safety Report 20901664 (Version 3)
Quarter: 2022Q3

REPORT INFORMATION
  Report Type: Spontaneous
  Country: BR (occurrence: BR)
  Receive Date: 20220601
  Receipt Date: 20220706
  Transmission Date: 20221026
  Serious: Yes (Other)
  Sender: FDA-Public Use
  Company Number: BR-TAKEDA-2020TUS061458

PATIENT
  Age: 36 Year
  Sex: Male
  Weight: 60 kg

DRUGS (5)
  1. LISDEXAMFETAMINE DIMESYLATE [Interacting]
     Active Substance: LISDEXAMFETAMINE DIMESYLATE
     Indication: Disturbance in attention
     Dosage: 30 MILLIGRAM, QD
     Route: 048
     Dates: start: 20201212
  2. LISDEXAMFETAMINE DIMESYLATE [Interacting]
     Active Substance: LISDEXAMFETAMINE DIMESYLATE
     Indication: Somnolence
     Dosage: 50 MILLIGRAM
     Route: 065
  3. LISDEXAMFETAMINE DIMESYLATE [Interacting]
     Active Substance: LISDEXAMFETAMINE DIMESYLATE
     Indication: Attention deficit hyperactivity disorder
  4. BRINTELLIX [Interacting]
     Active Substance: VORTIOXETINE HYDROBROMIDE
     Indication: Depression
     Dosage: 10 MILLIGRAM
     Route: 065
  5. BRINTELLIX [Interacting]
     Active Substance: VORTIOXETINE HYDROBROMIDE
     Indication: Anxiety

REACTIONS (21)
  - Condition aggravated [Unknown]
  - Illness [Unknown]
  - Drug dependence [Unknown]
  - Therapeutic product effect incomplete [Unknown]
  - Head discomfort [Recovering/Resolving]
  - Drug ineffective [Not Recovered/Not Resolved]
  - Memory impairment [Unknown]
  - Somnolence [Recovering/Resolving]
  - Rebound effect [Unknown]
  - Withdrawal syndrome [Unknown]
  - Procrastination [Unknown]
  - Drug interaction [Unknown]
  - Dizziness [Not Recovered/Not Resolved]
  - Depression [Unknown]
  - Incorrect dose administered [Unknown]
  - Off label use [Unknown]
  - Impaired quality of life [Unknown]
  - Adverse drug reaction [Unknown]
  - Nervousness [Unknown]
  - Depressed mood [Unknown]
  - Feeling abnormal [Unknown]

NARRATIVE: CASE EVENT DATE: 20201212
